FAERS Safety Report 16500022 (Version 2)
Quarter: 2019Q3

REPORT INFORMATION
  Report Type: Spontaneous
  Country: DE (occurrence: DE)
  Receive Date: 20190701
  Receipt Date: 20190926
  Transmission Date: 20191004
  Serious: Yes (Congenital Anomaly, Other)
  Sender: FDA-Public Use
  Company Number: PHHY2019DE145152

PATIENT
  Age: 8 Month
  Sex: Male
  Weight: 4.74 kg

DRUGS (4)
  1. LAMOTRIGINE. [Suspect]
     Active Substance: LAMOTRIGINE
     Indication: FOETAL EXPOSURE DURING PREGNANCY
     Dosage: UNK
     Route: 064
  2. KEPPRA [Suspect]
     Active Substance: LEVETIRACETAM
     Indication: FOETAL EXPOSURE DURING PREGNANCY
     Dosage: UNK
     Route: 064
  3. LAMOTRIGINE. [Suspect]
     Active Substance: LAMOTRIGINE
     Dosage: UNK
     Route: 063
  4. KEPPRA [Suspect]
     Active Substance: LEVETIRACETAM
     Dosage: UNK
     Route: 063

REACTIONS (3)
  - Maternal exposure during pregnancy [Unknown]
  - Exposure via breast milk [Unknown]
  - Congenital anomaly [Not Recovered/Not Resolved]

NARRATIVE: CASE EVENT DATE: 2014
